FAERS Safety Report 5885035-4 (Version None)
Quarter: 2008Q3

REPORT INFORMATION
  Report Type: 
  Country: None (occurrence: None)
  Receive Date: 20080912
  Receipt Date: 20080404
  Transmission Date: 20090109
  Serious: Yes (Hospitalization)
  Sender: FDA-Public Use
  Company Number: 2008US001004

PATIENT
  Age: 25 Year
  Sex: Male

DRUGS (5)
  1. PROGRAF [Suspect]
     Indication: LUNG TRANSPLANT
     Dosage: ORAL
     Route: 048
  2. CORITCOSTEROIDS [Concomitant]
  3. BASILIXIMAB (BASILIXIMAB) [Concomitant]
  4. MYCOPHENOLATE MOFETIL [Concomitant]
  5. CYCLOSPORINE [Concomitant]

REACTIONS (8)
  - ABDOMINAL WOUND DEHISCENCE [None]
  - BLINDNESS CORTICAL [None]
  - BLINDNESS TRANSIENT [None]
  - INCISION SITE INFECTION [None]
  - REVERSIBLE POSTERIOR LEUKOENCEPHALOPATHY SYNDROME [None]
  - SKIN GRAFT [None]
  - SMALL INTESTINAL OBSTRUCTION [None]
  - WOUND INFECTION [None]
